FAERS Safety Report 9525675 (Version 1)
Quarter: 2013Q1

REPORT INFORMATION
  Report Type: Spontaneous
  Country: US (occurrence: None)
  Receive Date: 20130305
  Receipt Date: 20130305
  Transmission Date: 20140127
  Serious: Yes (Hospitalization)
  Sender: FDA-Public Use
  Company Number: 163-21880-12023017

PATIENT
  Age: 73 Year
  Sex: Female
  Weight: 70.76 kg

DRUGS (8)
  1. REVLIMID [Suspect]
     Indication: PLASMA CELL MYELOMA
     Dosage: 25 MG, DAILY X 21 DAYS, PO
     Route: 048
     Dates: start: 20120116
  2. ACYCLOVIR (ACICLOVIR) (UNKNOWN) [Concomitant]
  3. DEXAMETHASONE (DEXAMETHASONE) (UNKNOWN) [Concomitant]
  4. DILAUDID (HYDROMORPHONE HYDROCHLORIDE) (UNKNOWN) [Concomitant]
  5. ENALAPRIL (ENALAPRIL) (UNKNOWN)? [Concomitant]
  6. GABAPENTIN (GABAPENTIN) (UNKNOWN) (GABAPENTIN) [Concomitant]
  7. LOVENOX (HEPARIN-FRACTION, SODIUM SALT) (SUSPENSION) [Concomitant]
  8. NITROFURANTOIN (NITROFURANTOIN) (UNKNOWN) [Concomitant]

REACTIONS (1)
  - Pneumonia [None]
